FAERS Safety Report 11167135 (Version 1)
Quarter: 2015Q2

REPORT INFORMATION
  Report Type: Spontaneous
  Country: DK (occurrence: None)
  Receive Date: 20150603
  Receipt Date: 20150603
  Transmission Date: 20150821
  Serious: Yes (Other)
  Sender: FDA-Public Use
  Company Number: 2015DEPDK00622

PATIENT
  Age: 52 Year

DRUGS (4)
  1. DEPOCYT(E) (CYTARABINE) LIPOSOME INJECTABLE SUSPENSION [Suspect]
     Active Substance: CYTARABINE
     Indication: CENTRAL NERVOUS SYSTEM LYMPHOMA
     Dosage: 50 MG, DAY 2, TREATMENT PHASE A2
     Route: 037
  2. IFOSFAMIDE (IFOSFAMIDE) [Concomitant]
     Active Substance: IFOSFAMIDE
  3. METHOTREXATE (METHOTREXATE SODIUM) [Concomitant]
     Active Substance: METHOTREXATE SODIUM
  4. DEXAMETHASONE (DEXAMETHASONE SODIUM PHOSPHATE) [Concomitant]

REACTIONS (5)
  - Vomiting [None]
  - Headache [None]
  - Nausea [None]
  - Arachnoiditis [None]
  - Feeding disorder [None]
